FAERS Safety Report 20474406 (Version 1)
Quarter: 2022Q1

REPORT INFORMATION
  Report Type: Spontaneous
  Country: US (occurrence: US)
  Receive Date: 20220215
  Receipt Date: 20220215
  Transmission Date: 20220424
  Serious: Yes (Other)
  Sender: FDA-Public Use
  Company Number: US-GLAXOSMITHKLINE- US2022GSK025044

PATIENT
  Sex: Female

DRUGS (21)
  1. ZANTAC [Suspect]
     Active Substance: RANITIDINE HYDROCHLORIDE
     Indication: Dyspepsia
     Dosage: 25 MG, 2X PER DAY
     Route: 065
     Dates: start: 199001, end: 202101
  2. ZANTAC [Suspect]
     Active Substance: RANITIDINE HYDROCHLORIDE
     Indication: Abdominal discomfort
     Dosage: 75 MG , 2X PER DAY
     Route: 065
     Dates: start: 199001, end: 202101
  3. ZANTAC [Suspect]
     Active Substance: RANITIDINE HYDROCHLORIDE
     Dosage: 150 MG ,2X PER DAY
     Route: 065
     Dates: start: 199001, end: 202101
  4. ZANTAC [Suspect]
     Active Substance: RANITIDINE HYDROCHLORIDE
     Dosage: UNK UNK, BID
     Route: 065
     Dates: start: 199001, end: 202101
  5. ZANTAC [Suspect]
     Active Substance: RANITIDINE HYDROCHLORIDE
     Indication: Dyspepsia
     Dosage: 25 MG, 2X PER DAY
     Route: 065
     Dates: start: 199001, end: 202101
  6. ZANTAC [Suspect]
     Active Substance: RANITIDINE HYDROCHLORIDE
     Indication: Abdominal discomfort
     Dosage: 75 MG, 2X PER DAY
     Route: 065
     Dates: start: 199001, end: 202101
  7. ZANTAC [Suspect]
     Active Substance: RANITIDINE HYDROCHLORIDE
     Dosage: 150 MG, 2X PER DAY
     Route: 065
     Dates: start: 199001, end: 202101
  8. ZANTAC [Suspect]
     Active Substance: RANITIDINE HYDROCHLORIDE
     Dosage: UNK UNK, BID
     Route: 065
     Dates: start: 199001, end: 202101
  9. RANITIDINE [Suspect]
     Active Substance: RANITIDINE
     Indication: Dyspepsia
     Dosage: 25 MG, 2X DAILY
     Route: 065
     Dates: start: 199001, end: 201901
  10. RANITIDINE [Suspect]
     Active Substance: RANITIDINE
     Indication: Abdominal discomfort
     Dosage: 75 MG, 2X DAILY
     Route: 065
     Dates: start: 199001, end: 202101
  11. RANITIDINE [Suspect]
     Active Substance: RANITIDINE
     Dosage: 150 MG, 2X DAILY
     Route: 065
     Dates: start: 199001, end: 202101
  12. RANITIDINE [Suspect]
     Active Substance: RANITIDINE
     Dosage: 300 MG,2X DAILY
     Route: 065
     Dates: start: 199001, end: 201901
  13. RANITIDINE [Suspect]
     Active Substance: RANITIDINE
     Dosage: UNK UNK, 2X DAILY
     Route: 065
     Dates: start: 199001, end: 202101
  14. RANITIDINE [Suspect]
     Active Substance: RANITIDINE
     Indication: Dyspepsia
     Dosage: 25 MG, 2X DAILY
     Route: 065
     Dates: start: 199001, end: 201901
  15. RANITIDINE [Suspect]
     Active Substance: RANITIDINE
     Indication: Abdominal discomfort
     Dosage: 75 MG, 2X DAILY
     Route: 065
     Dates: start: 199001, end: 201901
  16. RANITIDINE [Suspect]
     Active Substance: RANITIDINE
     Dosage: 150 MG, 2X DAILY
     Route: 065
     Dates: start: 199001, end: 201901
  17. RANITIDINE [Suspect]
     Active Substance: RANITIDINE
     Dosage: 300 MG, 2X DAILY
     Route: 065
     Dates: start: 199001, end: 201901
  18. RANITIDINE [Suspect]
     Active Substance: RANITIDINE
     Dosage: UNK UNK, 2X DAILY
     Route: 065
     Dates: start: 199001, end: 201901
  19. RANITIDINE [Suspect]
     Active Substance: RANITIDINE
     Dosage: UNK
  20. RANITIDINE [Suspect]
     Active Substance: RANITIDINE
     Dosage: UNK
  21. RANITIDINE [Suspect]
     Active Substance: RANITIDINE
     Dosage: UNK

REACTIONS (1)
  - Breast cancer [Unknown]
